FAERS Safety Report 17048869 (Version 1)
Quarter: 2019Q4

REPORT INFORMATION
  Report Type: Spontaneous
  Country: US (occurrence: US)
  Receive Date: 20191119
  Receipt Date: 20191119
  Transmission Date: 20200122
  Serious: No
  Sender: FDA-Public Use
  Company Number: US-SA-2019SA264716

PATIENT
  Age: 77 Year
  Sex: Female

DRUGS (3)
  1. REPATHA [Concomitant]
     Active Substance: EVOLOCUMAB
  2. PRALUENT [Suspect]
     Active Substance: ALIROCUMAB
     Indication: BLOOD CHOLESTEROL INCREASED
     Dosage: 75 MG,QOW
     Dates: start: 20190715
  3. PRALUENT [Suspect]
     Active Substance: ALIROCUMAB
     Dosage: 75 MG,QOW
     Dates: start: 201909

REACTIONS (4)
  - Product dose omission [Unknown]
  - Incorrect dose administered by device [Unknown]
  - Device operational issue [Unknown]
  - Wrong technique in device usage process [Unknown]

NARRATIVE: CASE EVENT DATE: 2019
